FAERS Safety Report 18552996 (Version 1)
Quarter: 2020Q4

REPORT INFORMATION
  Report Type: Spontaneous
  Country: AR (occurrence: AR)
  Receive Date: 20201127
  Receipt Date: 20201127
  Transmission Date: 20210114
  Serious: Yes (Other)
  Sender: FDA-Public Use
  Company Number: AR-AMGEN-ARGSP2020192826

PATIENT
  Age: 72 Year
  Sex: Female

DRUGS (1)
  1. ENBREL [Suspect]
     Active Substance: ETANERCEPT
     Indication: RHEUMATOID ARTHRITIS
     Dosage: 50 MILLIGRAM, QWK
     Route: 065
     Dates: start: 20120829, end: 202006

REACTIONS (6)
  - Visual impairment [Unknown]
  - Pain [Unknown]
  - Type 1 diabetes mellitus [Unknown]
  - Fear of injection [Unknown]
  - Neoplasm malignant [Unknown]
  - Axillary mass [Unknown]

NARRATIVE: CASE EVENT DATE: 20200605
